FAERS Safety Report 5724441-5 (Version None)
Quarter: 2008Q2

REPORT INFORMATION
  Report Type: 
  Country: None (occurrence: None)
  Receive Date: 20080428
  Receipt Date: 20080417
  Transmission Date: 20081010
  Serious: Yes (Other)
  Sender: FDA-Public Use
  Company Number: 2008AP000274

PATIENT
  Age: 32 Year
  Sex: Female

DRUGS (6)
  1. PAROXETINE HCL [Suspect]
     Dosage: PO, PO, PO, 20 MG; PO, PO, ORAL_LIQ; PO
     Route: 048
     Dates: end: 20050617
  2. PAROXETINE HCL [Suspect]
     Dosage: PO, PO, PO, 20 MG; PO, PO, ORAL_LIQ; PO
     Route: 048
     Dates: start: 19960409
  3. PAROXETINE HCL [Suspect]
     Dosage: PO, PO, PO, 20 MG; PO, PO, ORAL_LIQ; PO
     Route: 048
     Dates: start: 19980101
  4. PAROXETINE HCL [Suspect]
     Dosage: PO, PO, PO, 20 MG; PO, PO, ORAL_LIQ; PO
     Route: 048
     Dates: start: 20010208
  5. PAROXETINE HCL [Suspect]
     Dosage: PO, PO, PO, 20 MG; PO, PO, ORAL_LIQ; PO
     Route: 048
     Dates: start: 20050301
  6. AMITRIPTLINE HCL [Concomitant]

REACTIONS (19)
  - ADVERSE DRUG REACTION [None]
  - AGITATION [None]
  - ALTERED VISUAL DEPTH PERCEPTION [None]
  - ANOREXIA [None]
  - ANXIETY [None]
  - CONFUSIONAL STATE [None]
  - DIARRHOEA [None]
  - DIZZINESS [None]
  - FATIGUE [None]
  - INSOMNIA [None]
  - NAUSEA [None]
  - NIGHTMARE [None]
  - PARAESTHESIA [None]
  - SENSORY DISTURBANCE [None]
  - STRESS [None]
  - SUICIDAL IDEATION [None]
  - VISUAL DISTURBANCE [None]
  - VOMITING [None]
  - WITHDRAWAL SYNDROME [None]
